FAERS Safety Report 8861117 (Version 2)
Quarter: 2013Q1

REPORT INFORMATION
  Report Type: Spontaneous
  Country: AT (occurrence: None)
  Receive Date: 20121023
  Receipt Date: 20121031
  Transmission Date: 20140127
  Serious: Yes (Other)
  Sender: FDA-Public Use
  Company Number: DSA_60261_2012

PATIENT
  Age: 51 Year
  Sex: Male

DRUGS (5)
  1. FLUOROURACIL (FLUOROURACIL) [Suspect]
     Indication: RECTAL CANCER
     Route: 040
  2. OXALIPLATIN [Suspect]
     Indication: RECTAL CANCER
  3. LEUCOVORIN /00566701/ (LEUCOVORIN-FOLINIC ACID) [Suspect]
     Indication: RECTAL CANCER
  4. PRASUGREL (UNKNOWN) [Concomitant]
  5. ACETYLSALICYLIC ACID (UNKNOWN) [Concomitant]

REACTIONS (4)
  - Cardiac failure acute [None]
  - Coronary artery stenosis [None]
  - Acute coronary syndrome [None]
  - Vasoconstriction [None]
